FAERS Safety Report 6567282-1 (Version None)
Quarter: 2010Q1

REPORT INFORMATION
  Report Type: 
  Country: None (occurrence: None)
  Receive Date: 20100202
  Receipt Date: 20091231
  Transmission Date: 20100710
  Serious: No
  Sender: FDA-Public Use
  Company Number: US-BAYER-201010055NA

PATIENT
  Age: 71 Year
  Sex: Female

DRUGS (2)
  1. ULTRAVIST 300 [Suspect]
     Indication: ABDOMINAL PAIN
     Dosage: AS USED: 74 ML
     Route: 042
     Dates: start: 20091230, end: 20091230
  2. CONTRAST [Concomitant]
     Indication: COMPUTERISED TOMOGRAM ABDOMEN
     Dates: start: 20091230, end: 20091230

REACTIONS (3)
  - NASAL CONGESTION [None]
  - PHARYNGEAL OEDEMA [None]
  - SNEEZING [None]
